FAERS Safety Report 15775787 (Version 3)
Quarter: 2019Q1

REPORT INFORMATION
  Report Type: Spontaneous
  Country: US (occurrence: US)
  Receive Date: 20181231
  Receipt Date: 20190316
  Transmission Date: 20190417
  Serious: Yes (Hospitalization, Other)
  Sender: FDA-Public Use
  Company Number: US-009507513-1812USA012159

PATIENT
  Age: 70 Year
  Sex: Female

DRUGS (9)
  1. ASMANEX [Suspect]
     Active Substance: MOMETASONE FUROATE
     Dosage: 1 DOSAGE FORM, QD
     Route: 055
     Dates: start: 20181221
  2. PROAIR HFA [Concomitant]
     Active Substance: ALBUTEROL SULFATE
     Dosage: UNK
  3. SEREVENT DISKUS [Concomitant]
     Active Substance: SALMETEROL XINAFOATE
     Dosage: UNK
  4. ASMANEX [Suspect]
     Active Substance: MOMETASONE FUROATE
     Dosage: 1 DOSAGE FORM, QD
     Route: 055
     Dates: start: 20181121
  5. IRBESARTAN. [Concomitant]
     Active Substance: IRBESARTAN
     Dosage: UNK
  6. SINGULAIR [Concomitant]
     Active Substance: MONTELUKAST SODIUM
     Dosage: UNK
  7. ASMANEX [Suspect]
     Active Substance: MOMETASONE FUROATE
     Indication: ASTHMA
     Dosage: (1 PUFF) ONCE DAILY 7 OR 8 YEARS AGO
     Route: 055
     Dates: start: 2010
  8. ASMANEX [Suspect]
     Active Substance: MOMETASONE FUROATE
     Dosage: 1 DOSAGE FORM, QD
     Route: 055
     Dates: start: 20181226
  9. ASMANEX [Suspect]
     Active Substance: MOMETASONE FUROATE
     Dosage: 1 PUFF DAILY
     Route: 055

REACTIONS (15)
  - Product quality issue [Recovered/Resolved]
  - Dyspnoea [Unknown]
  - Macular degeneration [Unknown]
  - Aortic arteriosclerosis [Unknown]
  - Endometrial cancer [Unknown]
  - Product quality issue [Unknown]
  - Blood urine present [Unknown]
  - Product quality issue [Unknown]
  - Product dose omission [Unknown]
  - Pulmonary mass [Unknown]
  - Product dose omission [Unknown]
  - Cataract [Unknown]
  - Hiatus hernia [Unknown]
  - Chest discomfort [Recovered/Resolved]
  - Product quality issue [Unknown]

NARRATIVE: CASE EVENT DATE: 201701
